FAERS Safety Report 8829646 (Version 1)
Quarter: 2012Q4

REPORT INFORMATION
  Report Type: 
  Country: US (occurrence: US)
  Receive Date: 20121008
  Receipt Date: 20121008
  Transmission Date: 20130627
  Serious: No
  Sender: FDA-Public Use
  Company Number: US-TEVA-310868USA

PATIENT
  Sex: Female

DRUGS (4)
  1. QVAR [Suspect]
     Dosage: 160 Microgram Daily;
     Route: 055
     Dates: start: 2009
  2. SINGULAIR [Concomitant]
  3. WAL-ACT [Concomitant]
  4. PROVENTIL [Concomitant]

REACTIONS (3)
  - Dysphagia [Unknown]
  - Oropharyngeal pain [Unknown]
  - Dry throat [Unknown]
